FAERS Safety Report 18277465 (Version 1)
Quarter: 2020Q3

REPORT INFORMATION
  Report Type: Spontaneous
  Country: US (occurrence: US)
  Receive Date: 20200916
  Receipt Date: 20200916
  Transmission Date: 20201103
  Serious: No
  Sender: FDA-Public Use
  Company Number: None

PATIENT
  Age: 3 Year
  Sex: Female

DRUGS (1)
  1. VIGABATRIN POWDER 500MG CIPLA USA [Suspect]
     Active Substance: VIGABATRIN
     Indication: EPILEPSY
     Dosage: ?          OTHER ROUTE:G?TUBE?
     Dates: start: 20200303

REACTIONS (1)
  - Pupillary disorder [None]

NARRATIVE: CASE EVENT DATE: 202008
